FAERS Safety Report 7958072-3 (Version None)
Quarter: 2011Q4

REPORT INFORMATION
  Report Type: 
  Country: None (occurrence: None)
  Receive Date: 20111201
  Receipt Date: 20111123
  Transmission Date: 20120403
  Serious: Yes (Hospitalization)
  Sender: FDA-Public Use
  Company Number: VISP-NO-1110S-0416

PATIENT
  Age: 72 Year
  Sex: Male
  Weight: 70 kg

DRUGS (2)
  1. VISIPAQUE [Suspect]
     Indication: RENAL MASS
     Dosage: 100 ML, SINGLE DOSE, INTRAVENOUS
     Route: 042
     Dates: start: 20111011, end: 20111011
  2. ACETYLSALICYLIC ACID (ASPIRIN) (ACETYLSALICYLIC ACID) [Concomitant]

REACTIONS (4)
  - CEREBRAL INFARCTION [None]
  - PAIN [None]
  - INJECTION SITE PAIN [None]
  - PYREXIA [None]
